FAERS Safety Report 10083219 (Version 1)
Quarter: 2014Q2

REPORT INFORMATION
  Report Type: Spontaneous
  Country: US (occurrence: US)
  Receive Date: 20140417
  Receipt Date: 20140417
  Transmission Date: 20141212
  Serious: Yes (Hospitalization, Other)
  Sender: FDA-Public Use
  Company Number: US-BEH-2014041730

PATIENT
  Age: 82 Year
  Sex: Male

DRUGS (2)
  1. ZEMAIRA [Suspect]
     Indication: PLASMA PROTEIN METABOLISM DISORDER
  2. ZEMAIRA [Suspect]
     Indication: PLASMA PROTEIN METABOLISM DISORDER

REACTIONS (2)
  - Pneumonia [Unknown]
  - Pharyngitis streptococcal [Recovering/Resolving]
